FAERS Safety Report 7734108-X (Version None)
Quarter: 2011Q3

REPORT INFORMATION
  Report Type: 
  Country: None (occurrence: None)
  Receive Date: 20110907
  Receipt Date: 20110831
  Transmission Date: 20111222
  Serious: Yes (Hospitalization)
  Sender: FDA-Public Use
  Company Number: CN-ROCHE-799856

PATIENT
  Sex: Male
  Weight: 60 kg

DRUGS (5)
  1. MYCOPHENOLATE MOFETIL [Concomitant]
     Indication: RENAL TRANSPLANT
     Route: 048
     Dates: start: 20090701, end: 20110501
  2. PROGRAF [Concomitant]
     Indication: RENAL TRANSPLANT
     Route: 048
     Dates: start: 20090701
  3. MYCOPHENOLATE MOFETIL [Suspect]
     Indication: RENAL TRANSPLANT
     Route: 048
     Dates: start: 20110501
  4. MYCOPHENOLATE MOFETIL [Suspect]
     Route: 048
     Dates: start: 20110601
  5. STEROID NOS [Concomitant]
     Indication: RENAL TRANSPLANT
     Route: 048
     Dates: start: 20090701

REACTIONS (3)
  - BLOOD CREATININE INCREASED [None]
  - ADHESION [None]
  - DUODENAL ULCER [None]
